FAERS Safety Report 13359048 (Version 1)
Quarter: 2017Q1

REPORT INFORMATION
  Report Type: Spontaneous
  Country: US (occurrence: US)
  Receive Date: 20170321
  Receipt Date: 20170321
  Transmission Date: 20170429
  Serious: Yes (Life-Threatening, Other)
  Sender: FDA-Public Use
  Company Number: None

PATIENT
  Age: 11 Year
  Sex: Female
  Weight: 51.75 kg

DRUGS (2)
  1. STRATTERA [Suspect]
     Active Substance: ATOMOXETINE HYDROCHLORIDE
     Indication: ANXIETY
     Dosage: QUANTITY:1 CAPSULE(S); AT BEDTIME?
     Route: 048
     Dates: start: 20170220, end: 20170316
  2. STRATTERA [Suspect]
     Active Substance: ATOMOXETINE HYDROCHLORIDE
     Indication: ATTENTION DEFICIT/HYPERACTIVITY DISORDER
     Dosage: QUANTITY:1 CAPSULE(S); AT BEDTIME?
     Route: 048
     Dates: start: 20170220, end: 20170316

REACTIONS (1)
  - Self-injurious ideation [None]

NARRATIVE: CASE EVENT DATE: 20170316
